FAERS Safety Report 12913719 (Version 1)
Quarter: 2016Q4

REPORT INFORMATION
  Report Type: Report from Study
  Country: None (occurrence: RO)
  Receive Date: 20161104
  Receipt Date: 20161104
  Transmission Date: 20170207
  Serious: Yes (Hospitalization)
  Sender: FDA-Public Use
  Company Number: RO-ABBVIE-16P-135-1771182-00

PATIENT
  Age: 64 Year
  Sex: Female

DRUGS (10)
  1. MODERIBA [Suspect]
     Active Substance: RIBAVIRIN
     Indication: HEPATIC CIRRHOSIS
     Route: 048
     Dates: start: 20161015
  2. VIEKIRAX [Suspect]
     Active Substance: OMBITASVIR\PARITAPREVIR\RITONAVIR
     Indication: HEPATITIS C
     Route: 048
     Dates: start: 20160824
  3. VIEKIRAX [Suspect]
     Active Substance: OMBITASVIR\PARITAPREVIR\RITONAVIR
     Indication: HEPATIC CIRRHOSIS
  4. EXVIERA [Suspect]
     Active Substance: DASABUVIR
     Indication: HEPATITIS C
     Route: 048
     Dates: start: 20160824
  5. TENAXUM [Concomitant]
     Active Substance: RILMENIDINE
     Indication: HYPERTENSION
  6. MODERIBA [Suspect]
     Active Substance: RIBAVIRIN
     Indication: HEPATITIS C
     Route: 048
     Dates: start: 20160824, end: 20160915
  7. PRESTARIUM [Concomitant]
     Active Substance: PERINDOPRIL
     Indication: HYPERTENSION
     Route: 048
  8. EGILOK [Concomitant]
     Active Substance: METOPROLOL TARTRATE
     Indication: HYPERTENSION
     Route: 048
  9. EXVIERA [Suspect]
     Active Substance: DASABUVIR
     Indication: HEPATIC CIRRHOSIS
  10. SIOFOR [Concomitant]
     Active Substance: METFORMIN HYDROCHLORIDE
     Indication: DIABETES MELLITUS
     Route: 048
     Dates: start: 2011

REACTIONS (2)
  - Hypertension [Recovered/Resolved]
  - Haemoglobin decreased [Recovered/Resolved]

NARRATIVE: CASE EVENT DATE: 20160830
